FAERS Safety Report 7976047-5 (Version None)
Quarter: 2011Q4

REPORT INFORMATION
  Report Type: 
  Country: None (occurrence: None)
  Receive Date: 20111213
  Receipt Date: 20111208
  Transmission Date: 20120403
  Serious: No
  Sender: FDA-Public Use
  Company Number: US-BAYER-2011-118847

PATIENT
  Age: 62 Year
  Sex: Female

DRUGS (5)
  1. ATENOLOL [Concomitant]
  2. ULTRAVIST 150 [Suspect]
     Indication: PELVIC MASS
     Dosage: UNK
     Route: 048
     Dates: start: 20111208, end: 20111208
  3. ULTRAVIST 150 [Suspect]
     Indication: COMPUTERISED TOMOGRAM ABDOMEN
     Dosage: 80 ML, ONCE
     Dates: start: 20111208, end: 20111208
  4. SYNTHROID [Concomitant]
  5. PRAVASTATIN [Concomitant]

REACTIONS (2)
  - URTICARIA [None]
  - PRURITUS [None]
